FAERS Safety Report 10589753 (Version 1)
Quarter: 2014Q4

REPORT INFORMATION
  Report Type: Spontaneous
  Country: US (occurrence: None)
  Receive Date: 20141117
  Receipt Date: 20141117
  Transmission Date: 20150529
  Serious: Yes (Disabling)
  Sender: FDA-Public Use
  Company Number: None

PATIENT
  Age: 47 Year
  Sex: Female
  Weight: 88.91 kg

DRUGS (1)
  1. GLYCOLAX [Suspect]
     Active Substance: POLYETHYLENE GLYCOL 3350
     Indication: CONSTIPATION
     Dosage: 1- CAPFUL TWICE DAILY
     Route: 048
     Dates: start: 20041013, end: 20141115

REACTIONS (4)
  - Pain [None]
  - Urticaria [None]
  - Rash pruritic [None]
  - Hair colour changes [None]
